FAERS Safety Report 8418332-9 (Version None)
Quarter: 2012Q2

REPORT INFORMATION
  Report Type: 
  Country: None (occurrence: None)
  Receive Date: 20120607
  Receipt Date: 20120528
  Transmission Date: 20120825
  Serious: Yes (Hospitalization, Other)
  Sender: FDA-Public Use
  Company Number: MX-NOVOPROD-352612

PATIENT
  Age: 41 Year
  Sex: Female
  Weight: 104.9 kg

DRUGS (1)
  1. VICTOZA [Suspect]
     Indication: OBESITY

REACTIONS (1)
  - CHOLELITHIASIS [None]
